FAERS Safety Report 26193414 (Version 1)
Quarter: 2025Q4

REPORT INFORMATION
  Report Type: Spontaneous
  Country: CA (occurrence: CA)
  Receive Date: 20251223
  Receipt Date: 20251223
  Transmission Date: 20260118
  Serious: Yes (Other)
  Sender: NOVARTIS
  Company Number: CA-HALEON-2279928

PATIENT
  Age: 44 Year
  Sex: Male

DRUGS (17)
  1. VOLTAREN [Suspect]
     Active Substance: DICLOFENAC SODIUM
     Indication: Product used for unknown indication
     Dosage: UNK (ROUTE OF ADMINISTRATION: UNKNOWN)
     Route: 065
  2. COSENTYX [Suspect]
     Active Substance: SECUKINUMAB
     Indication: Psoriatic arthropathy
     Dosage: UNK
     Route: 058
  3. IRBESARTAN [Suspect]
     Active Substance: IRBESARTAN
     Indication: Product used for unknown indication
     Dosage: UNK (ROUTE OF ADMINISTRATION: UNKNOWN)
     Route: 065
  4. ROSUVASTATIN CALCIUM [Suspect]
     Active Substance: ROSUVASTATIN CALCIUM
     Indication: Product used for unknown indication
     Dosage: UNK (ROUTE OF ADMINISTRATION: UNKNOWN)
     Route: 065
  5. BACLOFEN [Suspect]
     Active Substance: BACLOFEN
     Indication: Product used for unknown indication
     Dosage: UNK (ROUTE OF ADMINISTRATION: UNKNOWN)
     Route: 065
  6. METHOTREXATE [Suspect]
     Active Substance: METHOTREXATE
     Indication: Product used for unknown indication
     Dosage: UNK (ROUTE OF ADMINISTRATION: UNKNOWN)
     Route: 065
  7. CANNABIS SATIVA FLOWERING TOP [Concomitant]
     Active Substance: CANNABIS SATIVA FLOWERING TOP
     Indication: Product used for unknown indication
     Dosage: UNK (ROUTE OF ADMINISTRATION: UNKNOWN)
     Route: 065
  8. CANNABIS SATIVA FLOWERING TOP [Concomitant]
     Active Substance: CANNABIS SATIVA FLOWERING TOP
     Dosage: UNK (ROUTE OF ADMINISTRATION: UNKNOWN)
     Route: 065
  9. DETROL [Concomitant]
     Active Substance: TOLTERODINE TARTRATE
     Indication: Product used for unknown indication
     Dosage: UNK (ROUTE OF ADMINISTRATION: UNKNOWN)
     Route: 065
  10. AMLODIPINE BESYLATE [Concomitant]
     Active Substance: AMLODIPINE BESYLATE
     Indication: Product used for unknown indication
     Dosage: UNK (ROUTE OF ADMINISTRATION: UNKNOWN)
     Route: 065
  11. CLOBETASOL [Concomitant]
     Active Substance: CLOBETASOL
     Indication: Product used for unknown indication
     Dosage: UNK (ROUTE OF ADMINISTRATION: UNKNOWN)
     Route: 065
  12. MELOXICAM [Concomitant]
     Active Substance: MELOXICAM
     Indication: Product used for unknown indication
     Dosage: UNK (ROUTE OF ADMINISTRATION: UNKNOWN)
     Route: 065
  13. MELOXICAM [Concomitant]
     Active Substance: MELOXICAM
     Dosage: UNK (ROUTE OF ADMINISTRATION: UNKNOWN)
     Route: 065
  14. METHYLPREDNISOLONE SODIUM SUCCINATE [Concomitant]
     Active Substance: METHYLPREDNISOLONE SODIUM SUCCINATE
     Indication: Product used for unknown indication
     Dosage: UNK (ROUTE OF ADMINISTRATION: UNKNOWN)
     Route: 065
  15. METHYLPREDNISOLONE SODIUM SUCCINATE [Concomitant]
     Active Substance: METHYLPREDNISOLONE SODIUM SUCCINATE
     Dosage: UNK (ROUTE OF ADMINISTRATION: UNKNOWN)
     Route: 065
  16. NAPROXEN [Concomitant]
     Active Substance: NAPROXEN
     Indication: Product used for unknown indication
     Dosage: UNK (ROUTE OF ADMINISTRATION: UNKNOWN)
     Route: 065
  17. AMLODIPINE BESYLATE [Concomitant]
     Active Substance: AMLODIPINE BESYLATE
     Indication: Product used for unknown indication
     Dosage: UNK (ROUTE OF ADMINISTRATION: UNKNOWN)
     Route: 065

REACTIONS (10)
  - Seronegative arthritis [Recovering/Resolving]
  - Blood pressure systolic increased [Recovering/Resolving]
  - Drug ineffective [Recovering/Resolving]
  - Inflammatory marker increased [Recovering/Resolving]
  - Musculoskeletal discomfort [Recovering/Resolving]
  - Prostatic specific antigen increased [Recovering/Resolving]
  - Arthralgia [Recovering/Resolving]
  - Joint swelling [Recovering/Resolving]
  - Lipoma [Recovering/Resolving]
  - Psoriasis [Recovering/Resolving]
